FAERS Safety Report 5105175-7 (Version None)
Quarter: 2006Q3

REPORT INFORMATION
  Report Type: 
  Country: None (occurrence: None)
  Receive Date: 20060911
  Receipt Date: 20060829
  Transmission Date: 20061208
  Serious: Yes (Other)
  Sender: FDA-Public Use
  Company Number: 2006105837

PATIENT
  Sex: Female

DRUGS (12)
  1. CHANTIX [Suspect]
     Indication: DRUG USE FOR UNKNOWN INDICATION
     Dosage: 1 MG (0.5 MG, 2 IN 1 D), ORAL
     Route: 048
     Dates: start: 20060813
  2. OXYCODONE HCL [Suspect]
     Indication: PAIN
     Dates: start: 20060817
  3. LESCOL XL [Concomitant]
  4. RISPERDAL 9RISPERIDONE) [Concomitant]
  5. PRANDIN [Concomitant]
  6. AVANDIA [Concomitant]
  7. ZETIA [Concomitant]
  8. DEPAKOTE [Concomitant]
  9. ALPRAZOLAM [Concomitant]
  10. LORAZEPAM [Concomitant]
  11. METFORMIN HCL [Concomitant]
  12. PREVACID [Concomitant]

REACTIONS (7)
  - ASTHENIA [None]
  - DRUG INEFFECTIVE [None]
  - DYSGEUSIA [None]
  - FLAT AFFECT [None]
  - LETHARGY [None]
  - ORAL SURGERY [None]
  - SLEEP DISORDER [None]
